FAERS Safety Report 25302614 (Version 2)
Quarter: 2025Q2

REPORT INFORMATION
  Report Type: Spontaneous
  Country: NL (occurrence: NL)
  Receive Date: 20250512
  Receipt Date: 20250515
  Transmission Date: 20250717
  Serious: Yes (Hospitalization, Other)
  Sender: MYLAN
  Company Number: None

PATIENT
  Age: 71 Year
  Sex: Male
  Weight: 75 kg

DRUGS (24)
  1. ABIRATERONE [Interacting]
     Active Substance: ABIRATERONE
     Indication: Prostate cancer metastatic
     Dosage: 1000 MILLIGRAM, QD  (1X DAILY 1000MG)
     Dates: start: 20240601, end: 20240801
  2. ABIRATERONE [Interacting]
     Active Substance: ABIRATERONE
     Dosage: 1000 MILLIGRAM, QD  (1X DAILY 1000MG)
     Route: 048
     Dates: start: 20240601, end: 20240801
  3. ABIRATERONE [Interacting]
     Active Substance: ABIRATERONE
     Dosage: 1000 MILLIGRAM, QD  (1X DAILY 1000MG)
     Route: 048
     Dates: start: 20240601, end: 20240801
  4. ABIRATERONE [Interacting]
     Active Substance: ABIRATERONE
     Dosage: 1000 MILLIGRAM, QD  (1X DAILY 1000MG)
     Dates: start: 20240601, end: 20240801
  5. ROSUVASTATIN [Interacting]
     Active Substance: ROSUVASTATIN
     Indication: Myocardial infarction
     Dosage: 40 MILLIGRAM, QD (1X DAILY 1 PIECE)
     Dates: start: 20190101, end: 20240801
  6. ROSUVASTATIN [Interacting]
     Active Substance: ROSUVASTATIN
     Dosage: 40 MILLIGRAM, QD (1X DAILY 1 PIECE)
     Route: 048
     Dates: start: 20190101, end: 20240801
  7. ROSUVASTATIN [Interacting]
     Active Substance: ROSUVASTATIN
     Dosage: 40 MILLIGRAM, QD (1X DAILY 1 PIECE)
     Route: 048
     Dates: start: 20190101, end: 20240801
  8. ROSUVASTATIN [Interacting]
     Active Substance: ROSUVASTATIN
     Dosage: 40 MILLIGRAM, QD (1X DAILY 1 PIECE)
     Dates: start: 20190101, end: 20240801
  9. RIVAROXABAN [Concomitant]
     Active Substance: RIVAROXABAN
  10. RIVAROXABAN [Concomitant]
     Active Substance: RIVAROXABAN
     Route: 048
  11. RIVAROXABAN [Concomitant]
     Active Substance: RIVAROXABAN
     Route: 048
  12. RIVAROXABAN [Concomitant]
     Active Substance: RIVAROXABAN
  13. METOPROLOL [Concomitant]
     Active Substance: METOPROLOL
  14. METOPROLOL [Concomitant]
     Active Substance: METOPROLOL
     Route: 048
  15. METOPROLOL [Concomitant]
     Active Substance: METOPROLOL
     Route: 048
  16. METOPROLOL [Concomitant]
     Active Substance: METOPROLOL
  17. TRIPTORELIN [Concomitant]
     Active Substance: TRIPTORELIN
  18. TRIPTORELIN [Concomitant]
     Active Substance: TRIPTORELIN
     Route: 065
  19. TRIPTORELIN [Concomitant]
     Active Substance: TRIPTORELIN
     Route: 065
  20. TRIPTORELIN [Concomitant]
     Active Substance: TRIPTORELIN
  21. CHLORTHALIDONE [Concomitant]
     Active Substance: CHLORTHALIDONE
  22. CHLORTHALIDONE [Concomitant]
     Active Substance: CHLORTHALIDONE
     Route: 048
  23. CHLORTHALIDONE [Concomitant]
     Active Substance: CHLORTHALIDONE
     Route: 048
  24. CHLORTHALIDONE [Concomitant]
     Active Substance: CHLORTHALIDONE

REACTIONS (3)
  - Rhabdomyolysis [Recovering/Resolving]
  - Acute kidney injury [Recovering/Resolving]
  - Drug interaction [Unknown]
